FAERS Safety Report 12358990 (Version 1)
Quarter: 2016Q2

REPORT INFORMATION
  Report Type: Spontaneous
  Country: US (occurrence: None)
  Receive Date: 20160511
  Receipt Date: 20160511
  Transmission Date: 20160815
  Serious: Yes (Hospitalization)
  Sender: FDA-Public Use
  Company Number: None

PATIENT
  Age: 65 Year
  Sex: Female

DRUGS (5)
  1. NATURE-THROID [Concomitant]
     Active Substance: THYROID, PORCINE
  2. VIBERZI [Suspect]
     Active Substance: ELUXADOLINE
     Indication: DIARRHOEA
     Route: 048
     Dates: start: 20160108, end: 20160217
  3. VITAMIN D3 [Concomitant]
     Active Substance: CHOLECALCIFEROL
  4. K2 [Concomitant]
     Active Substance: JWH-018
  5. HIGH BLOOD PRESSURE MEDICINE [Concomitant]

REACTIONS (2)
  - Large intestine perforation [None]
  - Feeling abnormal [None]
